FAERS Safety Report 5695541-3 (Version None)
Quarter: 2008Q2

REPORT INFORMATION
  Report Type: 
  Country: None (occurrence: None)
  Receive Date: 20080407
  Receipt Date: 20080331
  Transmission Date: 20081010
  Serious: Yes (Other)
  Sender: FDA-Public Use
  Company Number: TR-BRISTOL-MYERS SQUIBB COMPANY-14131106

PATIENT
  Age: 4 Year
  Sex: Male

DRUGS (5)
  1. AMIKACIN SULFATE [Suspect]
     Indication: STAPHYLOCOCCAL INFECTION
     Route: 042
  2. LINEZOLID [Suspect]
     Indication: STAPHYLOCOCCAL INFECTION
     Route: 042
  3. IMIPENEM [Suspect]
     Indication: STAPHYLOCOCCAL INFECTION
     Route: 042
  4. CEFTRIAXONE [Suspect]
  5. TEICOPLANIN [Suspect]

REACTIONS (2)
  - ANAEMIA [None]
  - THROMBOCYTOPENIA [None]
